FAERS Safety Report 14427347 (Version 1)
Quarter: 2018Q1

REPORT INFORMATION
  Report Type: Spontaneous
  Country: US (occurrence: US)
  Receive Date: 20180123
  Receipt Date: 20180123
  Transmission Date: 20180509
  Serious: No
  Sender: FDA-Public Use
  Company Number: US-IMPAX LABORATORIES, INC-2017-IPXL-03414

PATIENT
  Age: 77 Year
  Sex: Male
  Weight: 72 kg

DRUGS (12)
  1. RYTARY [Suspect]
     Active Substance: CARBIDOPA\LEVODOPA
     Dosage: 61.25/245MG, 7 DF, DAILY (6 IN DAY AND 1 IN EVENING)
     Route: 065
  2. DONEPEZIL. [Concomitant]
     Active Substance: DONEPEZIL
     Indication: PARKINSON^S DISEASE
     Dosage: 10 MG, UNK
     Route: 065
  3. FLUDROCORTISONE [Concomitant]
     Active Substance: FLUDROCORTISONE
     Indication: PARKINSON^S DISEASE
     Dosage: 0.1 MG, 3 /DAY
     Route: 065
  4. ESCITALOPRAM [Concomitant]
     Active Substance: ESCITALOPRAM OXALATE
     Indication: PARKINSON^S DISEASE
     Dosage: 20MG, 1 DF, DAILY
     Route: 065
  5. CLONAZEPAM. [Concomitant]
     Active Substance: CLONAZEPAM
     Indication: PARKINSON^S DISEASE
     Dosage: 5MG, 1 DF, DAILY
     Route: 065
  6. FAMOTIDINE. [Concomitant]
     Active Substance: FAMOTIDINE
     Indication: GASTRIC DISORDER
     Dosage: 20 MG, UNK
     Route: 065
  7. RYTARY [Suspect]
     Active Substance: CARBIDOPA\LEVODOPA
     Indication: PARKINSON^S DISEASE
     Dosage: 61.25/245MG, 6 DF, DAILY
     Route: 065
     Dates: start: 2017
  8. FLUTICASONE PROPIONATE. [Concomitant]
     Active Substance: FLUTICASONE PROPIONATE
     Indication: PRODUCTIVE COUGH
     Dosage: UNK
     Route: 065
  9. POTASSIUM [Concomitant]
     Active Substance: POTASSIUM
     Indication: PRODUCT USED FOR UNKNOWN INDICATION
     Dosage: 20 MG, 2 /DAY
     Route: 065
  10. VITAMIN D [Concomitant]
     Active Substance: CHOLECALCIFEROL
     Indication: PRODUCT USED FOR UNKNOWN INDICATION
     Dosage: UNK, 2 /DAY
     Route: 065
  11. LOVASTATIN. [Concomitant]
     Active Substance: LOVASTATIN
     Indication: HYPERCHOLESTEROLAEMIA
     Dosage: 20 MG, UNK
     Route: 065
  12. AMITIZA [Concomitant]
     Active Substance: LUBIPROSTONE
     Indication: DYSPEPSIA
     Dosage: 8MCG,1 TABLET 2 TIMES A DAY
     Route: 065

REACTIONS (8)
  - Hypoacusis [Not Recovered/Not Resolved]
  - Tremor [Unknown]
  - Nervousness [Not Recovered/Not Resolved]
  - Asthenia [Not Recovered/Not Resolved]
  - Drug effect delayed [Unknown]
  - Weight decreased [Unknown]
  - Drug effect variable [Unknown]
  - Memory impairment [Unknown]
